FAERS Safety Report 20113604 (Version 4)
Quarter: 2022Q2

REPORT INFORMATION
  Report Type: Report from Study
  Country: US (occurrence: US)
  Receive Date: 20211125
  Receipt Date: 20220419
  Transmission Date: 20220721
  Serious: No
  Sender: FDA-Public Use
  Company Number: US-NOVARTISTESTPH-NVSC2021US270477

PATIENT
  Age: 19 Year
  Sex: Female

DRUGS (1)
  1. KESIMPTA [Suspect]
     Active Substance: OFATUMUMAB
     Indication: Multiple sclerosis
     Dosage: 20 MG, QW
     Route: 058
     Dates: start: 20211109

REACTIONS (4)
  - Influenza like illness [Recovered/Resolved]
  - Hyperaesthesia teeth [Unknown]
  - Dental caries [Unknown]
  - Flank pain [Unknown]

NARRATIVE: CASE EVENT DATE: 20211109
